FAERS Safety Report 6813808-X (Version None)
Quarter: 2010Q3

REPORT INFORMATION
  Report Type: 
  Country: None (occurrence: None)
  Receive Date: 20100702
  Receipt Date: 20100629
  Transmission Date: 20110219
  Serious: Yes (Death, Hospitalization)
  Sender: FDA-Public Use
  Company Number: US-ASTRAZENECA-2007UW13927

PATIENT
  Age: 778 Month
  Sex: Male

DRUGS (26)
  1. SEROQUEL [Suspect]
     Indication: SLEEP DISORDER
     Dosage: 25 MG THREE TIMES A DAY
     Route: 048
     Dates: start: 20030101, end: 20060901
  2. SEROQUEL [Suspect]
     Indication: DEPRESSION
     Dosage: 25 MG THREE TIMES A DAY
     Route: 048
     Dates: start: 20030101, end: 20060901
  3. SEROQUEL [Suspect]
     Indication: DEMENTIA
     Dosage: 25 MG THREE TIMES A DAY
     Route: 048
     Dates: start: 20030101, end: 20060901
  4. SEROQUEL [Suspect]
     Dosage: STRENGTH: 25 MG TO 125 MG DAILY
     Route: 048
     Dates: start: 20050610
  5. SEROQUEL [Suspect]
     Dosage: STRENGTH: 25 MG TO 125 MG DAILY
     Route: 048
     Dates: start: 20050610
  6. SEROQUEL [Suspect]
     Dosage: STRENGTH: 25 MG TO 125 MG DAILY
     Route: 048
     Dates: start: 20050610
  7. SEROQUEL [Suspect]
     Dates: end: 20090824
  8. SEROQUEL [Suspect]
     Dates: end: 20090824
  9. SEROQUEL [Suspect]
     Dates: end: 20090824
  10. KEPPRA [Concomitant]
     Dosage: STRENGTH: 1000 MG TO 2000 MG
     Route: 048
     Dates: start: 20050610
  11. LISINOPRIL [Concomitant]
     Route: 048
     Dates: start: 20050610
  12. NAMENDA [Concomitant]
     Route: 048
     Dates: start: 20050610
  13. ARICEPT [Concomitant]
     Route: 048
     Dates: start: 20050610
  14. NEURONTIN [Concomitant]
     Dosage: STRENGTH: 600 MG TO 900 MG
     Dates: start: 20050610
  15. ARAVA [Concomitant]
     Route: 048
     Dates: start: 20050610, end: 20070401
  16. XANAX [Concomitant]
     Indication: AGITATION
     Dosage: STRENGTH: 0.5 MG TO 1.5 MG
     Route: 048
     Dates: start: 19980928
  17. XANAX [Concomitant]
     Indication: DEPRESSION
     Dosage: STRENGTH: 0.5 MG TO 1.5 MG
     Route: 048
     Dates: start: 19980928
  18. XANAX [Concomitant]
     Dates: start: 19990101
  19. XANAX [Concomitant]
     Dates: start: 19990101
  20. BACTRIM [Concomitant]
     Dosage: STRENGTH: TWO TABLETS DAILY
     Route: 048
     Dates: start: 20050610
  21. RISPERDAL [Concomitant]
     Indication: DEPRESSION
     Dates: start: 20041101, end: 20041201
  22. RISPERDAL [Concomitant]
     Indication: DEMENTIA
     Dates: start: 20041101, end: 20041201
  23. DEPAKOTE [Concomitant]
     Dates: start: 20000101
  24. EFFEXOR [Concomitant]
     Indication: DEPRESSION
     Dosage: 37.5 MG TO 150 MG
     Dates: start: 19980101, end: 20010101
  25. LORAZEPAM [Concomitant]
     Dates: start: 20040101
  26. ZOLOFT [Concomitant]
     Dates: start: 19980101

REACTIONS (10)
  - ABDOMINAL PAIN [None]
  - COMPLEX PARTIAL SEIZURES [None]
  - CONVULSION [None]
  - CYSTITIS [None]
  - DEATH [None]
  - DIABETES MELLITUS INADEQUATE CONTROL [None]
  - DIVERTICULITIS [None]
  - TREMOR [None]
  - TYPE 2 DIABETES MELLITUS [None]
  - URINARY TRACT INFECTION [None]
